FAERS Safety Report 7305248-4 (Version None)
Quarter: 2011Q1

REPORT INFORMATION
  Report Type: 
  Country: None (occurrence: None)
  Receive Date: 20110222
  Receipt Date: 20110210
  Transmission Date: 20110831
  Serious: Yes (Other)
  Sender: FDA-Public Use
  Company Number: JP-PFIZER INC-2011026579

PATIENT
  Age: 60 Year
  Sex: Male

DRUGS (2)
  1. ZITHROMAX [Suspect]
     Indication: GINGIVAL SWELLING
     Dosage: 500 MG, DAILY
     Dates: start: 20101228, end: 20101230
  2. LAMISIL [Concomitant]

REACTIONS (2)
  - HYPOAESTHESIA [None]
  - PAIN IN EXTREMITY [None]
